FAERS Safety Report 9338379 (Version 1)
Quarter: 2013Q2

REPORT INFORMATION
  Report Type: Spontaneous
  Country: US (occurrence: US)
  Receive Date: 20130610
  Receipt Date: 20130610
  Transmission Date: 20140414
  Serious: No
  Sender: FDA-Public Use
  Company Number: US-PFIZER INC-2013173066

PATIENT
  Age: 53 Year
  Sex: Female

DRUGS (7)
  1. NEURONTIN [Suspect]
     Dosage: 600 MG,  2X/DAY
     Route: 048
  2. NEURONTIN [Suspect]
     Dosage: 900 MG, 1QHS
     Route: 048
  3. LEVOTHYROXINE SODIUM [Suspect]
     Dosage: UNK
  4. RABIES VACCINE [Suspect]
     Indication: IMMUNISATION
     Dosage: UNK
  5. SAVELLA [Suspect]
     Dosage: UNK
  6. XYZAL [Suspect]
     Dosage: UNK
  7. TOPROL XL [Suspect]
     Dosage: UNK

REACTIONS (1)
  - Drug hypersensitivity [Unknown]
